FAERS Safety Report 10168277 (Version 1)
Quarter: 2014Q2

REPORT INFORMATION
  Report Type: Spontaneous
  Country: GB (occurrence: GB)
  Receive Date: 20140512
  Receipt Date: 20140512
  Transmission Date: 20141212
  Serious: Yes (Other)
  Sender: FDA-Public Use
  Company Number: GB-GILEAD-2014-0102086

PATIENT
  Age: 89 Year
  Sex: Male

DRUGS (2)
  1. SOVALDI [Suspect]
     Route: 048
     Dates: start: 20140307
  2. DACLATASVIR [Suspect]
     Indication: HEPATITIS C
     Route: 048
     Dates: start: 20140307

REACTIONS (1)
  - Atrial fibrillation [Recovered/Resolved]
